FAERS Safety Report 12890270 (Version 1)
Quarter: 2016Q4

REPORT INFORMATION
  Report Type: Report from Study
  Country: US (occurrence: US)
  Receive Date: 20161027
  Receipt Date: 20161027
  Transmission Date: 20170207
  Serious: Yes (Hospitalization)
  Sender: FDA-Public Use
  Company Number: US-ACTELION-A-NJ2016-144323

PATIENT
  Age: 74 Year
  Sex: Male

DRUGS (1)
  1. TRACLEER [Suspect]
     Active Substance: BOSENTAN
     Indication: PULMONARY HYPERTENSION
     Dosage: 125 MG, BID
     Route: 048
     Dates: start: 20090603

REACTIONS (4)
  - Heart rate decreased [Unknown]
  - Rectal polyp [Unknown]
  - Rectal haemorrhage [Unknown]
  - Gastric ulcer [Unknown]
